APPROVED DRUG PRODUCT: DOXEPIN HYDROCHLORIDE
Active Ingredient: DOXEPIN HYDROCHLORIDE
Strength: EQ 75MG BASE
Dosage Form/Route: CAPSULE;ORAL
Application: A071763 | Product #001
Applicant: WATSON LABORATORIES INC
Approved: Feb 9, 1988 | RLD: No | RS: No | Type: DISCN